FAERS Safety Report 5107019-6 (Version None)
Quarter: 2006Q3

REPORT INFORMATION
  Report Type: 
  Country: None (occurrence: None)
  Receive Date: 20060918
  Receipt Date: 20060908
  Transmission Date: 20061208
  Serious: Yes (Hospitalization)
  Sender: FDA-Public Use
  Company Number: DE-ABBOTT-06P-062-0343563-00

PATIENT

DRUGS (1)
  1. ERGENYL CHRONOSPHERE-SACHET [Suspect]
     Indication: EPILEPSY
     Route: 048

REACTIONS (2)
  - CEREBRAL HAEMORRHAGE [None]
  - SKIN DISCOLOURATION [None]
